FAERS Safety Report 7416221-X (Version None)
Quarter: 2011Q2

REPORT INFORMATION
  Report Type: 
  Country: None (occurrence: None)
  Receive Date: 20110414
  Receipt Date: 20110411
  Transmission Date: 20111010
  Serious: Yes (Hospitalization, Other)
  Sender: FDA-Public Use
  Company Number: FR-AMGEN-FRASP2011015632

PATIENT
  Age: 48 Year
  Sex: Male
  Weight: 78 kg

DRUGS (7)
  1. NPLATE [Suspect]
     Indication: THROMBOCYTOPENIC PURPURA
     Dosage: 3 A?G, QWK
     Route: 058
     Dates: start: 20110224, end: 20110310
  2. VIREAD                             /01490001/ [Concomitant]
     Dosage: 245 MG, QD
     Route: 048
     Dates: start: 20110122
  3. LOVENOX [Concomitant]
     Dosage: 0.7 UNK, UNK
     Route: 058
     Dates: start: 20110311
  4. NEXIUM [Concomitant]
     Dosage: 20 MG, QD
     Route: 048
     Dates: start: 20110112
  5. MABTHERA [Concomitant]
     Dosage: UNK
     Dates: start: 20110126
  6. CORTANCYL [Concomitant]
     Dosage: 60 MG, UNK
     Dates: start: 20110113
  7. CACIT D3 [Concomitant]

REACTIONS (5)
  - THROMBOCYTOSIS [None]
  - PULMONARY EMBOLISM [None]
  - PNEUMOCYSTIS JIROVECI PNEUMONIA [None]
  - DEEP VEIN THROMBOSIS [None]
  - DYSPNOEA [None]
